FAERS Safety Report 6619774-4 (Version None)
Quarter: 2010Q1

REPORT INFORMATION
  Report Type: 
  Country: None (occurrence: None)
  Receive Date: 20100309
  Receipt Date: 20100301
  Transmission Date: 20100710
  Serious: Yes (Hospitalization)
  Sender: FDA-Public Use
  Company Number: DE-JNJFOC-20100300422

PATIENT
  Age: 39 Year
  Sex: Female
  Weight: 68.8 kg

DRUGS (4)
  1. RISPERDAL [Suspect]
     Indication: DRUG USE FOR UNKNOWN INDICATION
     Route: 048
     Dates: start: 20090807, end: 20091013
  2. RISPERDAL [Suspect]
     Route: 048
     Dates: start: 20090807, end: 20091013
  3. VENLAFAXINE [Suspect]
     Indication: DRUG USE FOR UNKNOWN INDICATION
     Route: 048
     Dates: start: 20050101
  4. VENLAFAXINE [Suspect]
     Route: 048
     Dates: start: 20050101

REACTIONS (4)
  - CONDITION AGGRAVATED [None]
  - OBSESSIVE-COMPULSIVE DISORDER [None]
  - RESTLESSNESS [None]
  - TARDIVE DYSKINESIA [None]
